FAERS Safety Report 7771844-3 (Version None)
Quarter: 2011Q3

REPORT INFORMATION
  Report Type: 
  Country: None (occurrence: None)
  Receive Date: 20110922
  Receipt Date: 20100830
  Transmission Date: 20111222
  Serious: No
  Sender: FDA-Public Use
  Company Number: US-ASTRAZENECA-2007UW27737

PATIENT
  Age: 402 Month
  Sex: Female
  Weight: 72.6 kg

DRUGS (5)
  1. SEROQUEL [Suspect]
     Indication: BIPOLAR DISORDER
     Dosage: 200 TO 30 MG
     Route: 048
     Dates: start: 20030801, end: 20050901
  2. CELEXA [Concomitant]
     Dates: start: 20081001
  3. SEROQUEL [Suspect]
     Route: 048
     Dates: start: 20030901, end: 20050901
  4. ABILIFY [Concomitant]
     Dates: start: 20050101
  5. BUSPAR [Concomitant]
     Dates: start: 20090701

REACTIONS (3)
  - TYPE 2 DIABETES MELLITUS [None]
  - OBESITY [None]
  - DIABETIC COMPLICATION [None]
